FAERS Safety Report 10612375 (Version 2)
Quarter: 2015Q4

REPORT INFORMATION
  Report Type: Spontaneous
  Country: AU (occurrence: AU)
  Receive Date: 20141127
  Receipt Date: 20151120
  Transmission Date: 20160304
  Serious: Yes (Hospitalization, Other)
  Sender: FDA-Public Use
  Company Number: AU-ABBVIE-14K-008-1309254-00

PATIENT
  Sex: Male

DRUGS (1)
  1. HUMIRA [Suspect]
     Active Substance: ADALIMUMAB
     Indication: RHEUMATOID ARTHRITIS
     Route: 065
     Dates: start: 201409

REACTIONS (25)
  - Skin lesion [Unknown]
  - Temporomandibular joint syndrome [Unknown]
  - Neck pain [Unknown]
  - Arthropathy [Not Recovered/Not Resolved]
  - Balance disorder [Unknown]
  - Joint dislocation [Unknown]
  - Trismus [Unknown]
  - Increased tendency to bruise [Recovering/Resolving]
  - Musculoskeletal stiffness [Unknown]
  - Musculoskeletal stiffness [Recovered/Resolved]
  - Rotator cuff syndrome [Recovering/Resolving]
  - Hypoacusis [Unknown]
  - Hearing impaired [Unknown]
  - Musculoskeletal stiffness [Unknown]
  - Impaired healing [Unknown]
  - Impaired healing [Unknown]
  - Drug ineffective [Unknown]
  - Tendon rupture [Unknown]
  - Laceration [Recovering/Resolving]
  - Laceration [Unknown]
  - Visual acuity reduced [Not Recovered/Not Resolved]
  - Musculoskeletal stiffness [Recovered/Resolved]
  - Visual impairment [Unknown]
  - Increased tendency to bruise [Unknown]
  - Musculoskeletal pain [Not Recovered/Not Resolved]

NARRATIVE: CASE EVENT DATE: 2014
